FAERS Safety Report 12287460 (Version 2)
Quarter: 2016Q2

REPORT INFORMATION
  Report Type: Report from Study
  Country: US (occurrence: US)
  Receive Date: 20160420
  Receipt Date: 20160503
  Transmission Date: 20160815
  Serious: Yes (Death, Hospitalization, Other)
  Sender: FDA-Public Use
  Company Number: US-BAYER-2016-068982

PATIENT
  Age: 53 Year
  Sex: Male

DRUGS (2)
  1. NEXAVAR [Suspect]
     Active Substance: SORAFENIB
     Indication: HEPATOCELLULAR CARCINOMA
     Dosage: 400 MG, BID
     Route: 048
     Dates: start: 20160402, end: 20160407
  2. NEXAVAR [Suspect]
     Active Substance: SORAFENIB
     Indication: HEPATOCELLULAR CARCINOMA
     Dosage: 200 MG, BID
     Route: 048
     Dates: start: 20160326, end: 20160401

REACTIONS (15)
  - Paracentesis [None]
  - Decreased appetite [None]
  - Death [Fatal]
  - Balance disorder [None]
  - Immobile [None]
  - Fall [None]
  - Sepsis [None]
  - Joint injury [None]
  - Weight decreased [None]
  - Asthenia [None]
  - Confusional state [None]
  - Ammonia increased [None]
  - Asthenia [None]
  - Abdominal pain [Not Recovered/Not Resolved]
  - Blood pressure increased [None]

NARRATIVE: CASE EVENT DATE: 201603
